FAERS Safety Report 17776115 (Version 3)
Quarter: 2020Q4

REPORT INFORMATION
  Report Type: Spontaneous
  Country: US (occurrence: US)
  Receive Date: 20200513
  Receipt Date: 20201118
  Transmission Date: 20210113
  Serious: Yes (Other)
  Sender: FDA-Public Use
  Company Number: US-PFIZER INC-2020190199

PATIENT
  Age: 58 Year
  Sex: Female

DRUGS (1)
  1. XELJANZ XR [Suspect]
     Active Substance: TOFACITINIB CITRATE
     Indication: RHEUMATOID ARTHRITIS
     Dosage: 11 MG, DAILY
     Route: 048
     Dates: start: 20200403

REACTIONS (11)
  - Osteoarthritis [Unknown]
  - Urticaria [Recovered/Resolved]
  - Product dose omission issue [Unknown]
  - Stress [Unknown]
  - Kidney infection [Recovering/Resolving]
  - Hypersomnia [Unknown]
  - Weight increased [Unknown]
  - Terminal insomnia [Unknown]
  - Pruritus [Recovered/Resolved]
  - Intentional product misuse [Unknown]
  - Sleep disorder [Unknown]

NARRATIVE: CASE EVENT DATE: 2020
